FAERS Safety Report 9760006 (Version 1)
Quarter: 2013Q4

REPORT INFORMATION
  Report Type: Spontaneous
  Country: US (occurrence: US)
  Receive Date: 20131216
  Receipt Date: 20131216
  Transmission Date: 20140711
  Serious: No
  Sender: FDA-Public Use
  Company Number: US-BIOGENIDEC-2013BI094151

PATIENT
  Age: 41 Year
  Sex: Female

DRUGS (6)
  1. TECFIDERA [Suspect]
     Indication: MULTIPLE SCLEROSIS
     Route: 048
     Dates: start: 201308
  2. AMBIEN [Concomitant]
  3. CARDURA [Concomitant]
  4. GLUCOPHAGE [Concomitant]
  5. BACLOFEN [Concomitant]
  6. OMNARIS [Concomitant]

REACTIONS (1)
  - Hyperhidrosis [Unknown]
